FAERS Safety Report 6945159-7 (Version None)
Quarter: 2010Q3

REPORT INFORMATION
  Report Type: 
  Country: None (occurrence: None)
  Receive Date: 20100827
  Receipt Date: 20100813
  Transmission Date: 20110219
  Serious: Yes (Hospitalization, Other)
  Sender: FDA-Public Use
  Company Number: US-AMGEN-US423775

PATIENT
  Sex: Female

DRUGS (21)
  1. ENBREL [Suspect]
     Indication: JUVENILE ARTHRITIS
     Route: 058
     Dates: start: 20000519
  2. ENBREL [Suspect]
     Indication: RHEUMATOID ARTHRITIS
  3. PREVACID [Concomitant]
  4. ZANTAC [Concomitant]
  5. FOLIC ACID [Concomitant]
  6. AMITRIPTYLINE HCL [Concomitant]
  7. PREDNISONE [Concomitant]
  8. UNSPECIFIED HORMONE REPLACEMENT THERAPY AGENT [Concomitant]
  9. CALCIUM WITH VITAMIN D [Concomitant]
  10. UNSPECIFIED INHALER [Concomitant]
     Route: 055
  11. SEREVENT [Concomitant]
  12. ALBUTEROL [Concomitant]
  13. FLONASE [Concomitant]
  14. MULTI-VITAMINS [Concomitant]
  15. DIAZEPAM [Concomitant]
  16. MECLIZINE [Concomitant]
  17. FERROUS SULFATE [Concomitant]
  18. OXYCODONE HCL [Concomitant]
  19. KLOR-CON [Concomitant]
  20. SYNTHROID [Concomitant]
  21. LOVAZA [Concomitant]

REACTIONS (24)
  - BENIGN UTERINE NEOPLASM [None]
  - COLON ADENOMA [None]
  - COLON OPERATION [None]
  - FALL [None]
  - FALLOPIAN TUBE CYST [None]
  - INJECTION SITE PAIN [None]
  - INTERVERTEBRAL DISC PROTRUSION [None]
  - JOINT STIFFNESS [None]
  - LIMB DISCOMFORT [None]
  - LIMB INJURY [None]
  - MIGRAINE [None]
  - OSTEOMYELITIS [None]
  - PNEUMONIA [None]
  - POLYCYSTIC OVARIES [None]
  - POST PROCEDURAL INFECTION [None]
  - PROCEDURAL PAIN [None]
  - PSEUDOMONAS INFECTION [None]
  - RHEUMATOID ARTHRITIS [None]
  - TENDON DISORDER [None]
  - TENDON RUPTURE [None]
  - TENOSYNOVITIS STENOSANS [None]
  - THERAPEUTIC RESPONSE DECREASED [None]
  - TRANSIENT ISCHAEMIC ATTACK [None]
  - VESTIBULAR NEURONITIS [None]
